FAERS Safety Report 19610255 (Version 1)
Quarter: 2021Q3

REPORT INFORMATION
  Report Type: Spontaneous
  Country: BG (occurrence: BG)
  Receive Date: 20210726
  Receipt Date: 20210726
  Transmission Date: 20211014
  Serious: Yes (Hospitalization, Other)
  Sender: FDA-Public Use
  Company Number: BG-CELLTRION-2021-BG-000007

PATIENT
  Age: 87 Year
  Sex: 0

DRUGS (3)
  1. TELMISARTAN [UNSPECIFIED] [Suspect]
     Active Substance: TELMISARTAN
     Indication: HYPERTENSION
     Dosage: 80MG ONCE A DAY FOR 5.5 YEARS, THEN 80MG ONCE A DAY FOR 4 YEARS (DIFFERENT PRODUCT MANUFACTURERS)
     Route: 065
  2. AMLODIPINE [Concomitant]
     Active Substance: AMLODIPINE BESYLATE
     Indication: HYPERTENSION
     Dosage: 5MG ONCE A DAY
     Route: 065
  3. AMLODIPINE/TELMISARTAN [Suspect]
     Active Substance: AMLODIPINE\TELMISARTAN
     Indication: HYPERTENSION
     Dosage: 80/5MG ONCE A DAY FOR 4 MONTHS (FIRST USE)
     Route: 065

REACTIONS (1)
  - Metastatic malignant melanoma [Recovered/Resolved]
